FAERS Safety Report 7705504-1 (Version None)
Quarter: 2011Q3

REPORT INFORMATION
  Report Type: 
  Country: None (occurrence: None)
  Receive Date: 20110824
  Receipt Date: 20110811
  Transmission Date: 20111222
  Serious: Yes (Death)
  Sender: FDA-Public Use
  Company Number: US-BRACCO-002283

PATIENT
  Sex: Female
  Weight: 92.97 kg

DRUGS (48)
  1. PROHANCE [Suspect]
     Indication: NUCLEAR MAGNETIC RESONANCE IMAGING BRAIN
     Route: 065
     Dates: start: 20040312, end: 20040312
  2. MAGNEVIST [Suspect]
     Indication: MEDICAL DEVICE COMPLICATION
     Route: 065
     Dates: start: 20020301, end: 20020301
  3. MAGNEVIST [Suspect]
     Indication: INVESTIGATION
     Route: 065
     Dates: start: 20040312, end: 20040312
  4. MUPIROCIN [Concomitant]
  5. RISPERIDONE [Concomitant]
  6. CONTRAST MEDIA [Concomitant]
     Indication: FISTULOGRAM
     Route: 065
     Dates: start: 20050106, end: 20050106
  7. HYDROCODONE BITARTRATE [Concomitant]
  8. MIDODRINE HYDROCHLORIDE [Concomitant]
  9. PROTONIX [Concomitant]
  10. CONTRAST MEDIA [Suspect]
     Indication: VENOGRAM
     Route: 065
     Dates: start: 20060320, end: 20060320
  11. SYNTHROID [Concomitant]
     Route: 065
  12. AMIODARONE HCL [Concomitant]
     Route: 065
  13. CONTRAST MEDIA [Concomitant]
     Route: 065
     Dates: start: 20050928, end: 20050928
  14. CITALOPRAM HYDROBROMIDE [Concomitant]
  15. PREDNISONE TAB [Concomitant]
  16. PROHANCE [Suspect]
     Indication: ANGIOGRAM
     Dates: start: 20040301, end: 20040301
  17. MAGNEVIST [Suspect]
     Indication: VENOGRAM
     Route: 065
     Dates: start: 20060322, end: 20060322
  18. RENAGEL [Concomitant]
     Route: 065
  19. CLOPIDOGREL BISULFATE [Concomitant]
  20. INSULIN HUMAN [Concomitant]
  21. MAGNEVIST [Suspect]
     Route: 065
     Dates: start: 20060301, end: 20060301
  22. CONTRAST MEDIA [Suspect]
     Route: 065
     Dates: start: 20060328, end: 20060328
  23. REGLAN [Concomitant]
     Route: 065
  24. CONTRAST MEDIA [Concomitant]
     Indication: CATHETER PLACEMENT
     Route: 065
     Dates: start: 20070308, end: 20070308
  25. CONTRAST MEDIA [Suspect]
     Route: 065
     Dates: start: 20060329, end: 20060329
  26. NEPHROCAPS [Concomitant]
  27. FERROUS SULFATE TAB [Concomitant]
  28. VITAMIN D [Concomitant]
  29. CONTRAST MEDIA [Suspect]
     Route: 065
     Dates: start: 20060322, end: 20060322
  30. CELEXA [Concomitant]
     Route: 065
  31. SIMAVASTATIN [Concomitant]
     Route: 065
  32. VISIPAQUE [Concomitant]
     Indication: COMPUTERISED TOMOGRAM
     Route: 065
     Dates: start: 20020328, end: 20020328
  33. ISOVUE-128 [Concomitant]
     Indication: FISTULOGRAM
     Route: 065
     Dates: start: 20040203, end: 20040203
  34. LACTINOL-E [Concomitant]
  35. TRIAMCINOLONE ACETONIDE [Concomitant]
  36. EPOGEN [Concomitant]
  37. PROHANCE [Suspect]
     Indication: NUCLEAR MAGNETIC RESONANCE IMAGING
     Route: 065
     Dates: start: 20040312, end: 20040312
  38. MAGNEVIST [Suspect]
     Route: 065
     Dates: start: 20060301, end: 20060301
  39. MAGNEVIST [Suspect]
     Route: 065
     Dates: start: 20060320, end: 20060320
  40. SENSIPAR [Concomitant]
     Route: 065
  41. ERYTHROMYCINE [Concomitant]
     Dosage: TAKEN AS OF OCT-2006
     Route: 048
  42. DIAZEPAM [Concomitant]
  43. MAGNEVIST [Suspect]
     Indication: NUCLEAR MAGNETIC RESONANCE IMAGING
     Route: 065
     Dates: start: 20020312, end: 20020312
  44. WARFARIN SODIUM [Concomitant]
     Route: 065
  45. INSULIN [Concomitant]
     Route: 065
  46. SEVELAMER [Concomitant]
  47. LEVOTHYROXINE SODIUM [Concomitant]
  48. BENZACLIN [Concomitant]

REACTIONS (3)
  - NEPHROGENIC SYSTEMIC FIBROSIS [None]
  - ANXIETY [None]
  - ANHEDONIA [None]
